FAERS Safety Report 9108395 (Version 5)
Quarter: 2013Q2

REPORT INFORMATION
  Report Type: Spontaneous
  Country: BR (occurrence: BR)
  Receive Date: 20130222
  Receipt Date: 20130502
  Transmission Date: 20140414
  Serious: Yes (Other)
  Sender: FDA-Public Use
  Company Number: PHHY2013BR017714

PATIENT
  Sex: Female
  Weight: 75 kg

DRUGS (2)
  1. CODATEN [Suspect]
     Indication: PAIN
     Dosage: 1 DF, Q12H
     Route: 048
     Dates: start: 20130211, end: 20130217
  2. OLMETEC [Concomitant]
     Dosage: ONE TABLET A DAY (20MG)
     Route: 048

REACTIONS (5)
  - Herpes zoster [Not Recovered/Not Resolved]
  - Blood blister [Not Recovered/Not Resolved]
  - Pruritus [Recovering/Resolving]
  - Immune system disorder [Not Recovered/Not Resolved]
  - Drug hypersensitivity [Recovering/Resolving]
